FAERS Safety Report 7920686-4 (Version None)
Quarter: 2011Q4

REPORT INFORMATION
  Report Type: 
  Country: None (occurrence: None)
  Receive Date: 20111117
  Receipt Date: 20111110
  Transmission Date: 20120403
  Serious: Yes (Hospitalization, Other)
  Sender: FDA-Public Use
  Company Number: US-AMGEN-USASP2011055000

PATIENT
  Age: 56 Year
  Sex: Female

DRUGS (11)
  1. TREXALL [Concomitant]
     Dosage: 20 MG, QWK
  2. TREXALL [Concomitant]
     Dosage: 1 MG, QWK
     Dates: start: 20080101
  3. CALCIUM [Concomitant]
  4. VITAMIN B12                        /00056201/ [Concomitant]
     Dosage: UNK
  5. ENBREL [Suspect]
     Dosage: 50 MG, QWK
     Route: 058
     Dates: start: 20090115, end: 20090701
  6. ENBREL [Suspect]
     Dosage: 50 MG, QWK
     Dates: start: 20090101
  7. FOLIC ACID [Concomitant]
     Dosage: 1 MG, UNK
  8. NAPROSYN [Concomitant]
     Dosage: 500 MG, UNK
  9. LISINOPRIL AND HYDROCHLOROTHIAZIDE [Concomitant]
     Dosage: UNK
  10. ENBREL [Suspect]
     Indication: RHEUMATOID ARTHRITIS
     Dosage: 50 MG, QWK
     Route: 058
     Dates: start: 20110915
  11. ALLOPURINOL [Concomitant]
     Dosage: 300 MG, UNK

REACTIONS (4)
  - SYNDACTYLY [None]
  - ORAL INFECTION [None]
  - FINGER DEFORMITY [None]
  - WHITE BLOOD CELL COUNT INCREASED [None]
